FAERS Safety Report 9399457 (Version 5)
Quarter: 2013Q3

REPORT INFORMATION
  Report Type: Spontaneous
  Country: US (occurrence: None)
  Receive Date: 20130710
  Receipt Date: 20130912
  Transmission Date: 20140515
  Serious: Yes (Hospitalization, Other)
  Sender: FDA-Public Use
  Company Number: 2013-001205

PATIENT
  Age: 74 Year
  Sex: Female
  Weight: 59.9 kg

DRUGS (17)
  1. ACTONEL [Suspect]
     Indication: OSTEOPOROSIS
     Route: 048
     Dates: start: 20080616, end: 201106
  2. ACTONEL [Suspect]
     Indication: OSTEOPOROSIS PROPHYLAXIS
     Route: 048
     Dates: start: 20080616, end: 201106
  3. FOSAMAX (ALENDRONATE SODIUM) [Suspect]
     Indication: OSTEOPOROSIS
     Route: 048
     Dates: start: 20011025, end: 20080616
  4. FOSAMAX (ALENDRONATE SODIUM) [Suspect]
     Indication: OSTEOPOROSIS PROPHYLAXIS
     Route: 048
     Dates: start: 20011025, end: 20080616
  5. LEVOXYL (LEVOTHYROXINE SODIUM) [Concomitant]
  6. LIPITOR (ATORVASTATIN CALCIUM) [Concomitant]
  7. ASPIRIN (ACETYLSALICYLIC ACID) [Concomitant]
  8. VITAMIN D  (COLECALCIFEROL) [Concomitant]
  9. MULTIVITAMIN (ASCORBIC ACID, CALCIUM PANTOTHENATE, ERGOCALCIFEROL, NICOTINAMIDE, PYRIDOXINE HYDROCHLORIDE, RETINOL, RIBOFLAVIN, THIAMINE HYDROCHLORIDE) [Concomitant]
  10. ACTONEL (RISEDRONATE SODIUM) TABLET, 150MG [Suspect]
     Indication: OSTEOPOROSIS
     Route: 048
     Dates: start: 20080620, end: 201106
  11. ACTONEL (RISEDRONATE SODIUM) TABLET, 150MG [Suspect]
     Indication: OSTEOPOROSIS PROPHYLAXIS
     Route: 048
     Dates: start: 20080620, end: 201106
  12. PRILOSEC  (OMEPRAZOLE) [Concomitant]
  13. FOSAMAX PLUS D (ALENDRONATE SODIUM, COLECALCIFEROL) [Suspect]
     Indication: OSTEOPOROSIS
     Route: 048
     Dates: start: 20060927, end: 200805
  14. FOSAMAX PLUS D (ALENDRONATE SODIUM, COLECALCIFEROL) [Suspect]
     Route: 048
     Dates: start: 20060927, end: 200805
  15. ALPRAZOLAM (ALPRAZOLAM) [Concomitant]
  16. VALACICLOVIR (VALACICLOVIR) [Concomitant]
  17. GABAPENTIN  (GABAPENTIN) [Concomitant]

REACTIONS (22)
  - Femur fracture [None]
  - Pathological fracture [None]
  - Stress fracture [None]
  - Pain in extremity [None]
  - Limb injury [None]
  - Bone disorder [None]
  - Low turnover osteopathy [None]
  - Toxicity to various agents [None]
  - Sciatica [None]
  - Postmenopausal haemorrhage [None]
  - Transient ischaemic attack [None]
  - Cholelithiasis [None]
  - Tremor [None]
  - Pyelonephritis [None]
  - Urinary tract infection [None]
  - Tendonitis [None]
  - Renal cyst [None]
  - Breast mass [None]
  - Bile duct stone [None]
  - Herpes zoster [None]
  - Pulmonary mass [None]
  - Costochondritis [None]
